FAERS Safety Report 15429472 (Version 1)
Quarter: 2018Q3

REPORT INFORMATION
  Report Type: Spontaneous
  Country: IT (occurrence: IT)
  Receive Date: 20180926
  Receipt Date: 20180926
  Transmission Date: 20181010
  Serious: Yes (Other)
  Sender: FDA-Public Use
  Company Number: PHHY2018IT107753

PATIENT
  Age: 89 Year
  Sex: Male

DRUGS (1)
  1. BISOPROLOL FUMARATE. [Suspect]
     Active Substance: BISOPROLOL FUMARATE
     Indication: HYPERTENSION
     Dosage: 1.25 MG, QD
     Route: 048
     Dates: start: 20130101, end: 20180702

REACTIONS (2)
  - Bradycardia [Recovering/Resolving]
  - Electrocardiogram PR prolongation [Recovering/Resolving]

NARRATIVE: CASE EVENT DATE: 20180702
